FAERS Safety Report 14315381 (Version 2)
Quarter: 2018Q1

REPORT INFORMATION
  Report Type: Report from Study
  Country: US (occurrence: US)
  Receive Date: 20171221
  Receipt Date: 20180104
  Transmission Date: 20180509
  Serious: Yes (Other)
  Sender: FDA-Public Use
  Company Number: US-ACTELION-A-NJ2017-164408

PATIENT
  Age: 70 Year
  Sex: Female
  Weight: 65.31 kg

DRUGS (3)
  1. ADCIRCA [Concomitant]
     Active Substance: TADALAFIL
  2. OPSUMIT [Suspect]
     Active Substance: MACITENTAN
     Indication: PULMONARY HYPERTENSION
     Dosage: 10 MG, QD
     Route: 048
  3. OXYGEN. [Concomitant]
     Active Substance: OXYGEN

REACTIONS (4)
  - Fall [Unknown]
  - Upper limb fracture [Unknown]
  - Oxygen saturation decreased [Unknown]
  - Dizziness [Unknown]
